FAERS Safety Report 7897936-6 (Version None)
Quarter: 2011Q4

REPORT INFORMATION
  Report Type: 
  Country: None (occurrence: None)
  Receive Date: 20111107
  Receipt Date: 20111031
  Transmission Date: 20120403
  Serious: Yes (Hospitalization, Other)
  Sender: FDA-Public Use
  Company Number: US-ABBOTT-11P-163-0869614-00

PATIENT
  Sex: Male
  Weight: 83.99 kg

DRUGS (3)
  1. HUMIRA [Suspect]
     Indication: PSORIASIS
     Route: 058
     Dates: start: 20110701, end: 20111017
  2. HUMIRA [Suspect]
     Indication: PSORIATIC ARTHROPATHY
  3. TRAMADOL HCL [Concomitant]
     Indication: PSORIATIC ARTHROPATHY

REACTIONS (7)
  - PAIN IN EXTREMITY [None]
  - CELLULITIS [None]
  - OPEN WOUND [None]
  - SOFT TISSUE NECROSIS [None]
  - PYREXIA [None]
  - SKIN DISCOLOURATION [None]
  - NECROTISING FASCIITIS [None]
